FAERS Safety Report 12077309 (Version 5)
Quarter: 2016Q2

REPORT INFORMATION
  Report Type: Spontaneous
  Country: CH (occurrence: FI)
  Receive Date: 20160215
  Receipt Date: 20160502
  Transmission Date: 20160815
  Serious: Yes (Hospitalization)
  Sender: FDA-Public Use
  Company Number: CH-LPDUSPRD-20160118

PATIENT
  Age: 54 Year
  Sex: Female

DRUGS (10)
  1. CALCICHEW APPELSIINI [Concomitant]
     Dosage: 500 MG
     Route: 048
     Dates: start: 20140221, end: 20140714
  2. COHEMIN DEPOT [Concomitant]
     Route: 030
     Dates: start: 20090529
  3. MIRCERA [Concomitant]
     Active Substance: METHOXY POLYETHYLENE GLYCOL-EPOETIN BETA
     Dosage: 75 MCG
     Route: 058
     Dates: start: 20140403
  4. FLORINEF ACETATE [Concomitant]
     Active Substance: FLUDROCORTISONE ACETATE
     Dosage: 0.2 MG
     Route: 048
     Dates: start: 20131210
  5. KALEORID [Concomitant]
     Active Substance: POTASSIUM CHLORIDE
     Dosage: 2.25 GM
     Route: 048
     Dates: start: 20000101, end: 20140712
  6. ERALPHA [Concomitant]
     Dosage: 0.25 MCG
     Route: 048
     Dates: start: 20130108, end: 20150422
  7. FERINJECT [Suspect]
     Active Substance: FERRIC CARBOXYMALTOSE
     Dosage: 500 MG IN 250 ML 0.9%NACL
     Route: 041
     Dates: start: 20140327, end: 20140327
  8. KEFEXIN [Concomitant]
     Active Substance: CEPHALEXIN
     Dosage: 1 GM
     Route: 048
     Dates: start: 20140403, end: 20140412
  9. RETAFER [Concomitant]
     Dosage: 100 MG
     Route: 048
     Dates: start: 20090529, end: 20150612
  10. TENOX [Concomitant]
     Active Substance: TEMAZEPAM
     Route: 048
     Dates: start: 20080315, end: 20140412

REACTIONS (1)
  - Calciphylaxis [Recovered/Resolved]

NARRATIVE: CASE EVENT DATE: 20140922
